FAERS Safety Report 13827912 (Version 1)
Quarter: 2017Q3

REPORT INFORMATION
  Report Type: Report from Study
  Country: US (occurrence: US)
  Receive Date: 20170803
  Receipt Date: 20170803
  Transmission Date: 20171127
  Serious: No
  Sender: FDA-Public Use
  Company Number: PHHY2016US183436

PATIENT

DRUGS (1)
  1. GENTEAL MILD [Suspect]
     Active Substance: HYPROMELLOSE 2910 (4000 MPA.S)
     Indication: PRODUCT USED FOR UNKNOWN INDICATION
     Route: 065

REACTIONS (13)
  - Sensation of foreign body [Unknown]
  - Asthenopia [Unknown]
  - Eye irritation [Unknown]
  - Sensitivity of teeth [Unknown]
  - Eye pruritus [Unknown]
  - Dyspepsia [Unknown]
  - Headache [Unknown]
  - Gastrooesophageal reflux disease [Unknown]
  - Migraine [Unknown]
  - Ocular hyperaemia [Unknown]
  - Nasal disorder [Unknown]
  - Dry eye [Unknown]
  - Eye pain [Unknown]
